FAERS Safety Report 9535899 (Version 1)
Quarter: 2013Q2

REPORT INFORMATION
  Report Type: Spontaneous
  Country: US (occurrence: None)
  Receive Date: 20130507
  Receipt Date: 20130507
  Transmission Date: 20140414
  Serious: Yes (Other)
  Sender: FDA-Public Use
  Company Number: PHEH2013US001703

PATIENT
  Age: 19 Year
  Sex: Female

DRUGS (8)
  1. AFINITOR (RAD) UNKNOWN [Suspect]
     Indication: TUBEROUS SCLEROSIS
     Route: 048
     Dates: start: 20111017
  2. PROZAC (FLUOXETINE HYDROCHLORIDE) [Concomitant]
  3. LAMICTAL (LAMOTRIGINE) [Concomitant]
  4. DEPAKOTE (VALPROATE SEMISODIUM) [Concomitant]
  5. INSULIN (INSULIN) [Concomitant]
  6. VITAMIN C (ASCORVIC ACID) [Concomitant]
  7. VIT D (ERGOCALCIFEROL) [Concomitant]
  8. RETIGABINE (RETIGABINE) [Concomitant]

REACTIONS (2)
  - Pneumonia [None]
  - Cough [None]
